FAERS Safety Report 9453991 (Version 1)
Quarter: 2013Q3

REPORT INFORMATION
  Report Type: Spontaneous
  Country: AU (occurrence: AU)
  Receive Date: 20130812
  Receipt Date: 20130812
  Transmission Date: 20140515
  Serious: Yes (Other)
  Sender: FDA-Public Use
  Company Number: AU-PFIZER INC-2013230706

PATIENT
  Age: 67 Year
  Sex: Male

DRUGS (4)
  1. PRISTIQ [Suspect]
     Indication: DEPRESSION
     Dosage: 50 MG, UNK
  2. PRISTIQ [Suspect]
     Dosage: 100 MG, UNK
     Dates: end: 2013
  3. PRISTIQ [Suspect]
     Dosage: 50 MG, UNK
     Dates: end: 20130729
  4. PRISTIQ [Suspect]
     Dosage: 25 MG (HALF A 50MG DOSE), UNK
     Dates: start: 20130730, end: 20130806

REACTIONS (7)
  - Blindness [Unknown]
  - Vision blurred [Unknown]
  - Wrong technique in drug usage process [Unknown]
  - Drug withdrawal syndrome [Unknown]
  - Paraesthesia [Unknown]
  - Sleep disorder [Unknown]
  - Dizziness [Unknown]
